FAERS Safety Report 4562732-4 (Version None)
Quarter: 2005Q1

REPORT INFORMATION
  Report Type: 
  Country: None (occurrence: None)
  Receive Date: 20050127
  Receipt Date: 20041102
  Transmission Date: 20050727
  Serious: Yes (Hospitalization)
  Sender: FDA-Public Use
  Company Number: FR-NOVOPROD-240279

PATIENT
  Age: 75 Year
  Sex: Male

DRUGS (5)
  1. INSULATARD FLEXPEN [Suspect]
     Indication: DIABETES MELLITUS
     Dosage: 16 IU MANE/12 IU NOCTE
     Route: 058
     Dates: start: 20010101, end: 20031217
  2. ASPEGIC 325 [Concomitant]
     Dosage: 1 UNK, QD
     Route: 048
     Dates: start: 20031115, end: 20031215
  3. LIPANTHYL ^BRISTOL-MYERS SQUIBB^ [Concomitant]
     Dosage: 1 UNK, QD
     Route: 048
     Dates: start: 20010101, end: 20031210
  4. TEGRETOL [Concomitant]
     Indication: CEREBROVASCULAR ACCIDENT
     Dosage: 200 MG, QD
     Route: 048
     Dates: start: 20031115, end: 20031215
  5. NOOTROPYL [Concomitant]
     Dosage: 800 MG, QD
     Route: 048
     Dates: start: 20031117, end: 20031202

REACTIONS (1)
  - DRUG RASH WITH EOSINOPHILIA AND SYSTEMIC SYMPTOMS [None]
